FAERS Safety Report 5908449-2 (Version None)
Quarter: 2008Q3

REPORT INFORMATION
  Report Type: 
  Country: None (occurrence: None)
  Receive Date: 20080930
  Receipt Date: 20080917
  Transmission Date: 20090109
  Serious: Yes (Hospitalization)
  Sender: FDA-Public Use
  Company Number: DSU-2008-01136

PATIENT
  Age: 52 Year
  Sex: Male
  Weight: 104.7809 kg

DRUGS (3)
  1. BENICAR HCT [Suspect]
     Indication: HYPERTENSION
     Dosage: 20/12.5MG (QD), PER ORAL; 20/12.5MG (QD), PER ORAL
     Route: 048
     Dates: start: 20080505
  2. BENICAR HCT [Suspect]
     Indication: HYPERTENSION
     Dosage: 20/12.5MG (QD), PER ORAL; 20/12.5MG (QD), PER ORAL
     Route: 048
     Dates: start: 20080625
  3. ZESTORETIC (HYDROCHLOROTHIAZIDE, LISINOPRIL) (HYDROCHLOROTHIAZIDE, LIS [Concomitant]

REACTIONS (6)
  - DEHYDRATION [None]
  - DIZZINESS [None]
  - HEART RATE INCREASED [None]
  - HYPOTENSION [None]
  - MUSCLE SPASMS [None]
  - NAUSEA [None]
